FAERS Safety Report 8417282-1 (Version None)
Quarter: 2012Q2

REPORT INFORMATION
  Report Type: 
  Country: None (occurrence: None)
  Receive Date: 20120606
  Receipt Date: 20120531
  Transmission Date: 20120825
  Serious: Yes (Hospitalization)
  Sender: FDA-Public Use
  Company Number: FR-B.I. PHARMACEUTICALS,INC./RIDGEFIELD-2012-FF-00663FF

PATIENT
  Sex: Male
  Weight: 95.4 kg

DRUGS (8)
  1. PRADAXA [Suspect]
     Indication: THROMBOSIS PROPHYLAXIS
     Dosage: 150 MG
     Route: 048
     Dates: start: 20120425, end: 20120502
  2. SECTRAL [Concomitant]
  3. CRESTOR [Concomitant]
  4. ALFUZOSIN HCL [Concomitant]
  5. POTASSIUM CHLORIDE [Concomitant]
  6. ACETAMINOPHEN AND TRAMADOL HCL [Concomitant]
  7. EXFORGE [Concomitant]
  8. ASPIRIN [Concomitant]

REACTIONS (2)
  - PULMONARY EMBOLISM [None]
  - DRUG INEFFECTIVE [None]
